FAERS Safety Report 18630834 (Version 2)
Quarter: 2021Q1

REPORT INFORMATION
  Report Type: Report from Study
  Country: None (occurrence: US)
  Receive Date: 20201218
  Receipt Date: 20210220
  Transmission Date: 20210419
  Serious: Yes (Hospitalization)
  Sender: FDA-Public Use
  Company Number: US-ABBVIE-20K-163-3697054-00

PATIENT
  Sex: Female
  Weight: 70.37 kg

DRUGS (1)
  1. HUMIRA [Suspect]
     Active Substance: ADALIMUMAB
     Indication: CROHN^S DISEASE
     Dosage: CITRATE FREE?1 PEN
     Route: 058

REACTIONS (3)
  - Inflammation [Unknown]
  - Large intestinal stenosis [Unknown]
  - Abdominal adhesions [Unknown]
